FAERS Safety Report 24229301 (Version 1)
Quarter: 2024Q3

REPORT INFORMATION
  Report Type: Spontaneous
  Country: CA (occurrence: CA)
  Receive Date: 20240820
  Receipt Date: 20240820
  Transmission Date: 20241017
  Serious: Yes (Hospitalization)
  Sender: GE HEALTHCARE
  Company Number: CA-GE HEALTHCARE-2024CSU009392

PATIENT
  Age: 53 Year
  Sex: Female

DRUGS (3)
  1. OMNIPAQUE [Suspect]
     Active Substance: IOHEXOL
     Indication: Scan with contrast
     Dosage: UNK, TOTAL
     Route: 065
  2. DIPHENHYDRAMINE [Concomitant]
     Active Substance: DIPHENHYDRAMINE
     Route: 065
  3. PREDNISONE [Concomitant]
     Active Substance: PREDNISONE
     Route: 065

REACTIONS (4)
  - Sneezing [Unknown]
  - Ocular hyperaemia [Unknown]
  - Dyspnoea [Unknown]
  - Eye swelling [Unknown]
